FAERS Safety Report 10067306 (Version 1)
Quarter: 2014Q2

REPORT INFORMATION
  Report Type: Spontaneous
  Country: GB (occurrence: GB)
  Receive Date: 20140409
  Receipt Date: 20140409
  Transmission Date: 20141212
  Serious: Yes (Hospitalization)
  Sender: FDA-Public Use
  Company Number: GB-ACCORD-022854

PATIENT
  Age: 58 Year
  Sex: Female

DRUGS (7)
  1. FLUOROURACIL [Suspect]
     Indication: BREAST CANCER
  2. AMITRIPTYLINE [Concomitant]
     Dosage: NIGHT
  3. LEVOTHYROXINE [Concomitant]
  4. EPIRUBICIN [Suspect]
     Indication: BREAST CANCER
  5. CYCLOPHOSPHAMIDE [Suspect]
     Indication: BREAST CANCER
  6. DOCETAXEL [Suspect]
     Indication: BREAST CANCER
  7. SIMVASTATIN [Concomitant]
     Dosage: NIGHT
     Route: 048

REACTIONS (1)
  - Sepsis [Unknown]
